FAERS Safety Report 9347552 (Version 1)
Quarter: 2013Q2

REPORT INFORMATION
  Report Type: Spontaneous
  Country: US (occurrence: US)
  Receive Date: 20130614
  Receipt Date: 20130614
  Transmission Date: 20140414
  Serious: No
  Sender: FDA-Public Use
  Company Number: US-BIOGENIDEC-2013BI052990

PATIENT
  Age: 58 Year
  Sex: Female

DRUGS (4)
  1. TYSABRI [Suspect]
     Indication: MULTIPLE SCLEROSIS
     Route: 042
     Dates: start: 20110927, end: 201212
  2. TYSABRI [Suspect]
     Indication: RELAPSING-REMITTING MULTIPLE SCLEROSIS
     Route: 042
     Dates: start: 20110927, end: 201212
  3. TYSABRI [Suspect]
     Indication: MULTIPLE SCLEROSIS
     Route: 042
     Dates: start: 2013
  4. TYSABRI [Suspect]
     Indication: RELAPSING-REMITTING MULTIPLE SCLEROSIS
     Route: 042
     Dates: start: 2013

REACTIONS (7)
  - Balance disorder [Recovered/Resolved]
  - Crying [Recovered/Resolved]
  - Abnormal behaviour [Recovered/Resolved]
  - Gait disturbance [Recovered/Resolved]
  - Aphasia [Recovered/Resolved]
  - Burning sensation [Recovered/Resolved]
  - Post procedural complication [Recovered/Resolved]
